FAERS Safety Report 5389814-1 (Version None)
Quarter: 2007Q3

REPORT INFORMATION
  Report Type: 
  Country: None (occurrence: None)
  Receive Date: 20070718
  Receipt Date: 20070710
  Transmission Date: 20080115
  Serious: Yes (Life-Threatening, Hospitalization)
  Sender: FDA-Public Use
  Company Number: NLWYE004111JUL07

PATIENT
  Sex: Female
  Weight: 52 kg

DRUGS (6)
  1. EFFEXOR XR [Suspect]
     Indication: DEPRESSION
     Dates: start: 20050214
  2. EFFEXOR XR [Suspect]
  3. EFFEXOR XR [Suspect]
  4. ACETAMINOPHEN [Concomitant]
  5. ZOPICLONE [Concomitant]
     Dosage: 37.5 MG WHENEVER NECESSARY
     Dates: start: 20060101
  6. NEOCON [Concomitant]
     Dates: start: 19970101

REACTIONS (5)
  - AGGRESSION [None]
  - CONSTIPATION [None]
  - DISTURBANCE IN ATTENTION [None]
  - DRUG WITHDRAWAL SYNDROME [None]
  - SUICIDE ATTEMPT [None]
